FAERS Safety Report 11360063 (Version 2)
Quarter: 2016Q1

REPORT INFORMATION
  Report Type: Spontaneous
  Country: DK (occurrence: DK)
  Receive Date: 20150810
  Receipt Date: 20160202
  Transmission Date: 20160525
  Serious: Yes (Hospitalization, Disabling)
  Sender: FDA-Public Use
  Company Number: DK-009507513-1508DNK001504

PATIENT
  Sex: Female
  Weight: 50 kg

DRUGS (4)
  1. FOSAVANCE [Suspect]
     Active Substance: ALENDRONATE SODIUM\CHOLECALCIFEROL
     Indication: OSTEOPOROSIS
     Dosage: STRENGTH: 70MG + 70MICROGRAM, ONE TABLET WEEKLY AT LEAST HALF AN HOUR BEFORE MEAL
     Route: 048
     Dates: start: 20060124, end: 201304
  2. CALCIUM DURA VIT D3 TABLETS [Concomitant]
     Indication: OSTEOPOROSIS
     Dosage: 1 DF, BID
     Route: 048
     Dates: start: 1999
  3. DIDRONATE [Suspect]
     Active Substance: ETIDRONATE DISODIUM
     Indication: OSTEOPOROSIS
     Dosage: 2 TABLETS DAILY
     Route: 048
     Dates: start: 199907, end: 20060124
  4. ALENDRONATE TEVA [Suspect]
     Active Substance: ALENDRONATE SODIUM
     Indication: OSTEOPOROSIS
     Dosage: 70 MG ONCE WEEKLY
     Route: 048
     Dates: start: 201303, end: 201403

REACTIONS (16)
  - Osteoporosis [Not Recovered/Not Resolved]
  - Pelvic fracture [Recovered/Resolved with Sequelae]
  - Pathological fracture [Recovered/Resolved with Sequelae]
  - Femur fracture [Recovered/Resolved with Sequelae]
  - Osteonecrosis [Recovered/Resolved with Sequelae]
  - Tibia fracture [Recovered/Resolved with Sequelae]
  - Wrist fracture [Recovered/Resolved]
  - Wrist fracture [Recovered/Resolved]
  - Fracture [Unknown]
  - Fracture [Unknown]
  - Walking disability [Not Recovered/Not Resolved]
  - Wheelchair user [Not Recovered/Not Resolved]
  - Wrist fracture [Recovered/Resolved]
  - Stress fracture [Recovered/Resolved with Sequelae]
  - Hip arthroplasty [Not Recovered/Not Resolved]
  - Tibia fracture [Recovered/Resolved with Sequelae]

NARRATIVE: CASE EVENT DATE: 1999
